FAERS Safety Report 8407965-1 (Version None)
Quarter: 2012Q2

REPORT INFORMATION
  Report Type: 
  Country: None (occurrence: None)
  Receive Date: 20120601
  Receipt Date: 20120601
  Transmission Date: 20120825
  Serious: Yes (Disabling)
  Sender: FDA-Public Use
  Company Number: None

PATIENT
  Age: 16 Year
  Sex: Female
  Weight: 48.5 kg

DRUGS (6)
  1. METHOTREXATE [Concomitant]
  2. HUMIRA [Suspect]
     Indication: COLITIS ULCERATIVE
     Dosage: ADALIMUMAB 80MG SC Q WEEK 11/29/10 Q WK BUT 12/7/10 Q O WK
     Route: 058
  3. PREDNISONE TAB [Concomitant]
  4. AZATHIOPRINE [Suspect]
     Indication: COLITIS ULCERATIVE
     Dosage: AZATHIOPRINE 100MG DAILY
     Dates: start: 20101129
  5. MESALAMINE [Concomitant]
  6. INFLIXIMAB [Concomitant]

REACTIONS (21)
  - SEPSIS [None]
  - ARTHRALGIA [None]
  - JOINT SWELLING [None]
  - DISEASE PROGRESSION [None]
  - ANAEMIA [None]
  - IMPAIRED HEALING [None]
  - MYELODYSPLASTIC SYNDROME [None]
  - ACUTE MYELOID LEUKAEMIA [None]
  - POST PROCEDURAL COMPLICATION [None]
  - FEBRILE NEUTROPENIA [None]
  - ABDOMINAL PAIN [None]
  - RENAL FAILURE [None]
  - LUNG INFILTRATION [None]
  - NEOPLASM PROGRESSION [None]
  - TREATMENT FAILURE [None]
  - FISTULA [None]
  - DEEP VEIN THROMBOSIS [None]
  - COLITIS ULCERATIVE [None]
  - BLAST CELLS PRESENT [None]
  - POSTOPERATIVE WOUND COMPLICATION [None]
  - MEDICAL DEVICE COMPLICATION [None]
